FAERS Safety Report 10919075 (Version 1)
Quarter: 2015Q1

REPORT INFORMATION
  Report Type: Spontaneous
  Country: US (occurrence: None)
  Receive Date: 20150312
  Receipt Date: 20150312
  Transmission Date: 20150721
  Serious: Yes (Death)
  Sender: FDA-Public Use
  Company Number: INS201503-000076

PATIENT
  Age: 71 Year
  Sex: Male

DRUGS (1)
  1. SUBSYS [Suspect]
     Active Substance: FENTANYL
     Indication: CANCER PAIN
     Dosage: (200 MCG, 200 MCG, 120 UNITS)
     Dates: start: 20150127

REACTIONS (2)
  - Disease progression [None]
  - Oesophageal carcinoma [None]

NARRATIVE: CASE EVENT DATE: 20150128
